FAERS Safety Report 21230319 (Version 1)
Quarter: 2022Q3

REPORT INFORMATION
  Report Type: Spontaneous
  Country: NO (occurrence: NO)
  Receive Date: 20220818
  Receipt Date: 20220818
  Transmission Date: 20221027
  Serious: Yes (Life-Threatening, Hospitalization, Other)
  Sender: FDA-Public Use
  Company Number: NO-BoehringerIngelheim-2022-BI-187764

PATIENT
  Age: 54 Year
  Sex: Female
  Weight: 63 kg

DRUGS (5)
  1. CLONIDINE [Suspect]
     Active Substance: CLONIDINE
     Indication: Product used for unknown indication
     Dosage: 75MG X3 FOR 3 DAYS,75 MG X2 FOR 3 DAYS, 75 MG X1 FOR 3 DAYS.
     Dates: start: 20220629, end: 20220721
  2. Klexane inj, oppl 4 000 IU/spr?yte ENOXAPARIN SODIUM [Concomitant]
     Indication: Thrombosis prophylaxis
     Dosage: STRENGTH: OPPL 4 000  IU/SPROYTE
  3. ARCOXIA TAB 90MG [Concomitant]
     Indication: Pain
     Dates: start: 20220630, end: 20220715
  4. OxyNorm kaps 5 mg [Concomitant]
     Indication: Pain
     Dosage: UP TO X 4 WHEN IN PAIN?FORM: KAPS
     Dates: start: 20220630, end: 20220715
  5. OxyContin depottab 15 mg [Concomitant]
     Indication: Pain
     Dosage: 15X2 FOR 3 DAYS, 10 MG X2 FOR 3 DAYS, 5 MG X2 UNTIL SEP?FORM: DEPOTTAB
     Dates: start: 20220630, end: 20220715

REACTIONS (11)
  - Hypotension [Recovered/Resolved with Sequelae]
  - Dyspnoea [Recovering/Resolving]
  - Chest discomfort [Recovering/Resolving]
  - Atrioventricular block [Recovered/Resolved with Sequelae]
  - Anxiety [Recovered/Resolved]
  - Abdominal pain upper [Recovered/Resolved]
  - Sleep apnoea syndrome [Recovered/Resolved]
  - Cardiac failure [Recovered/Resolved with Sequelae]
  - Pericardial effusion [Recovered/Resolved]
  - Pulmonary oedema [Recovered/Resolved]
  - Bradycardia [Recovering/Resolving]

NARRATIVE: CASE EVENT DATE: 20220630
